FAERS Safety Report 6754594-1 (Version None)
Quarter: 2010Q2

REPORT INFORMATION
  Report Type: 
  Country: None (occurrence: None)
  Receive Date: 20100601
  Receipt Date: 20100525
  Transmission Date: 20101027
  Serious: Yes (Other)
  Sender: FDA-Public Use
  Company Number: 2010SP025235

PATIENT
  Age: 61 Year
  Sex: Female

DRUGS (2)
  1. NASONEX [Suspect]
     Indication: DRUG USE FOR UNKNOWN INDICATION
     Dosage: ;NAS
     Route: 045
     Dates: start: 20090901, end: 20090901
  2. NASONEX [Suspect]
     Indication: DRUG USE FOR UNKNOWN INDICATION
     Dosage: ;NAS
     Route: 045
     Dates: start: 20100401

REACTIONS (2)
  - CATARACT [None]
  - PRODUCT CONTAINER ISSUE [None]
